FAERS Safety Report 19943580 (Version 1)
Quarter: 2021Q4

REPORT INFORMATION
  Report Type: Spontaneous
  Country: US (occurrence: US)
  Receive Date: 20211012
  Receipt Date: 20211012
  Transmission Date: 20220303
  Serious: Yes (Hospitalization)
  Sender: FDA-Public Use
  Company Number: US-NOVARTISPH-NVSC2021US232306

PATIENT
  Age: 62 Year
  Sex: Female

DRUGS (2)
  1. RANITIDINE [Suspect]
     Active Substance: RANITIDINE
     Indication: Blood pressure abnormal
     Dosage: 300 MG, QD
     Route: 048
     Dates: start: 199807, end: 202004
  2. RANITIDINE [Suspect]
     Active Substance: RANITIDINE
     Indication: Blood pressure abnormal
     Dosage: 300 MG, QD
     Route: 048
     Dates: start: 199807, end: 202004

REACTIONS (4)
  - Colorectal cancer [Recovering/Resolving]
  - Ovarian cancer [Recovering/Resolving]
  - Uterine cancer [Recovering/Resolving]
  - Product use in unapproved indication [Unknown]

NARRATIVE: CASE EVENT DATE: 20160901
